FAERS Safety Report 18050116 (Version 2)
Quarter: 2020Q3

REPORT INFORMATION
  Report Type: Spontaneous
  Country: RO (occurrence: RO)
  Receive Date: 20200721
  Receipt Date: 20200810
  Transmission Date: 20201103
  Serious: Yes (Other)
  Sender: FDA-Public Use
  Company Number: RO-ROCHE-2644325

PATIENT
  Age: 49 Year
  Sex: Male

DRUGS (1)
  1. TECENTRIQ [Suspect]
     Active Substance: ATEZOLIZUMAB
     Indication: BLADDER TRANSITIONAL CELL CARCINOMA
     Route: 041
     Dates: start: 202001, end: 202005

REACTIONS (3)
  - Pulmonary fibrosis [Unknown]
  - Hilar lymphadenopathy [Unknown]
  - Emphysema [Unknown]

NARRATIVE: CASE EVENT DATE: 2020
